FAERS Safety Report 5662904-1 (Version None)
Quarter: 2008Q1

REPORT INFORMATION
  Report Type: 
  Country: None (occurrence: None)
  Receive Date: 20080307
  Receipt Date: 20080226
  Transmission Date: 20080703
  Serious: Yes (Hospitalization, Other)
  Sender: FDA-Public Use
  Company Number: 163-C5013-05060398

PATIENT
  Sex: Male
  Weight: 103.2 kg

DRUGS (11)
  1. CC-5013 (CAPSULES [Suspect]
     Indication: MULTIPLE MYELOMA
     Dosage: 25 MG, QD ON DAYS 1-21, EVERY 28 DAYS, ORAL, UNKNOWN LOWER DOSE, ORAL
     Route: 048
     Dates: start: 20050512, end: 20050720
  2. DEXAMETHASONE TAB [Suspect]
     Indication: MULTIPLE MYELOMA
     Dosage: 40 MG, QD ON DAYS 1-4, 9-12, 17-20 Q28 DAYS, ORAL
     Route: 048
     Dates: start: 20050811
  3. KEFLEX [Concomitant]
  4. COUMADIN [Concomitant]
  5. LOPRESSOR [Concomitant]
  6. LASIX [Concomitant]
  7. PACERONE [Concomitant]
  8. METOPROLOL TARTRATE [Concomitant]
  9. VERSED [Concomitant]
  10. DEMEROL [Concomitant]
  11. PROTONIX [Concomitant]

REACTIONS (20)
  - AORTIC VALVE SCLEROSIS [None]
  - ATRIAL FIBRILLATION [None]
  - CARDIO-RESPIRATORY ARREST [None]
  - CELLULITIS [None]
  - COLONIC POLYP [None]
  - DEEP VEIN THROMBOSIS [None]
  - DEPRESSION [None]
  - DUODENAL ULCER [None]
  - GASTRITIS [None]
  - HAEMORRHOIDS [None]
  - HYPERGLYCAEMIA [None]
  - HYPERKALAEMIA [None]
  - LEFT VENTRICULAR HYPERTROPHY [None]
  - MITRAL VALVE INCOMPETENCE [None]
  - MYOPATHY [None]
  - PERICARDIAL EFFUSION [None]
  - SPLENOMEGALY [None]
  - VARICES OESOPHAGEAL [None]
  - VENTRICULAR TACHYCARDIA [None]
  - WOUND INFECTION [None]
